FAERS Safety Report 11879584 (Version 1)
Quarter: 2015Q4

REPORT INFORMATION
  Report Type: Report from Study
  Country: US (occurrence: US)
  Receive Date: 20151230
  Receipt Date: 20151230
  Transmission Date: 20160305
  Serious: No
  Sender: FDA-Public Use
  Company Number: US-AEGERION PHARMACEUTICAL INC.-AEGR002190

PATIENT

DRUGS (4)
  1. OMEGA 3-6-9 [Concomitant]
     Active Substance: FISH OIL
  2. JUXTAPID [Suspect]
     Active Substance: LOMITAPIDE MESYLATE
     Indication: TYPE IIA HYPERLIPIDAEMIA
     Dosage: UNK
     Route: 048
     Dates: start: 20131216
  3. VITAMIN E [Concomitant]
     Active Substance: .ALPHA.-TOCOPHEROL
  4. JUXTAPID [Suspect]
     Active Substance: LOMITAPIDE MESYLATE
     Dosage: 20 MG, UNK
     Route: 048
     Dates: start: 20141210

REACTIONS (2)
  - Nail discolouration [Unknown]
  - Nail bed disorder [Unknown]

NARRATIVE: CASE EVENT DATE: 2014
